FAERS Safety Report 12380579 (Version 1)
Quarter: 2016Q2

REPORT INFORMATION
  Report Type: Spontaneous
  Country: US (occurrence: None)
  Receive Date: 20160517
  Receipt Date: 20160517
  Transmission Date: 20160815
  Serious: Yes (Disabling)
  Sender: FDA-Public Use
  Company Number: None

PATIENT
  Age: 36 Year
  Sex: Male
  Weight: 111.13 kg

DRUGS (3)
  1. LEVOFLOXACIN 750MG MACLEODS [Suspect]
     Active Substance: LEVOFLOXACIN
     Indication: SINUSITIS
     Route: 048
     Dates: start: 20160425, end: 20160428
  2. PREDNISONE. [Concomitant]
     Active Substance: PREDNISONE
  3. GABAPENTIN. [Concomitant]
     Active Substance: GABAPENTIN

REACTIONS (21)
  - Extraocular muscle disorder [None]
  - Aphasia [None]
  - Tendon pain [None]
  - Guillain-Barre syndrome [None]
  - Vision blurred [None]
  - Myasthenia gravis [None]
  - Diplopia [None]
  - Pain [None]
  - Paraesthesia [None]
  - Activities of daily living impaired [None]
  - Impaired driving ability [None]
  - Arthralgia [None]
  - Tendonitis [None]
  - Hypoaesthesia [None]
  - Dizziness [None]
  - Inflammation [None]
  - Dysarthria [None]
  - Musculoskeletal stiffness [None]
  - Abasia [None]
  - Pain in extremity [None]
  - Altered visual depth perception [None]

NARRATIVE: CASE EVENT DATE: 20160426
